FAERS Safety Report 6552450-5 (Version None)
Quarter: 2010Q1

REPORT INFORMATION
  Report Type: 
  Country: None (occurrence: None)
  Receive Date: 20100126
  Receipt Date: 20100113
  Transmission Date: 20100710
  Serious: Yes (Other)
  Sender: FDA-Public Use
  Company Number: PHHY2010MX01898

PATIENT
  Age: 74 Year
  Sex: Female

DRUGS (3)
  1. DIOVAN HCT [Suspect]
     Indication: HYPERTENSION
     Dosage: 2 TABLETS (80/12.5 MG) DAILY
     Route: 048
     Dates: start: 20060901, end: 20071201
  2. DIOVAN HCT [Suspect]
     Dosage: 0.5 TABLET (80/12.5 MG) DAILY
     Route: 048
     Dates: start: 20071201
  3. ASPIRIN [Concomitant]

REACTIONS (3)
  - BLINDNESS [None]
  - EFFUSION [None]
  - HEADACHE [None]
